FAERS Safety Report 4942894-7 (Version None)
Quarter: 2006Q1

REPORT INFORMATION
  Report Type: 
  Country: None (occurrence: None)
  Receive Date: 20060309
  Receipt Date: 20060222
  Transmission Date: 20060701
  Serious: Yes (Disabling, Congenital Anomaly, Other)
  Sender: FDA-Public Use
  Company Number: 2006-BP-02259RO

PATIENT
  Sex: Male

DRUGS (6)
  1. FLUCONAZOLE [Suspect]
     Dosage: 800 MG, SEE TEXT
  2. METHADONE HCL [Suspect]
     Dosage: 90 MG, SEE TEXT
  3. NEVIRAPINE [Suspect]
     Dosage: 400 MG, SEE TEXT
  4. EFAVIRENZ [Suspect]
     Dosage: 600 MG, SEE TEXT
  5. PENTAMIDINE (PENTAMIDINE) [Suspect]
     Dosage: SEE TEXT
  6. SEPTRA [Suspect]
     Dosage: SEE TEXT

REACTIONS (17)
  - BACTERAEMIA [None]
  - CEREBRAL DISORDER [None]
  - CONVULSION [None]
  - CONVULSION NEONATAL [None]
  - CRANIOSYNOSTOSIS [None]
  - DEAFNESS BILATERAL [None]
  - DEVELOPMENTAL DELAY [None]
  - DRUG EXPOSURE BEFORE PREGNANCY [None]
  - DRUG EXPOSURE DURING PREGNANCY [None]
  - DRUG WITHDRAWAL SYNDROME NEONATAL [None]
  - FACIAL DYSMORPHISM [None]
  - JOINT CONTRACTURE [None]
  - NEONATAL DISORDER [None]
  - NEONATAL PNEUMONIA [None]
  - PNEUMONIA STREPTOCOCCAL [None]
  - PREMATURE CLOSURE OF CRANIAL SUTURES [None]
  - RENAL DISORDER [None]
